FAERS Safety Report 6046173-9 (Version None)
Quarter: 2009Q1

REPORT INFORMATION
  Report Type: 
  Country: None (occurrence: None)
  Receive Date: 20090122
  Receipt Date: 20090113
  Transmission Date: 20090719
  Serious: Yes (Hospitalization)
  Sender: FDA-Public Use
  Company Number: JP-JNJFOC-20081206550

PATIENT
  Sex: Male

DRUGS (7)
  1. CRAVIT [Suspect]
     Indication: URINARY TRACT INFECTION
     Route: 048
  2. RIZABEN [Concomitant]
     Indication: URTICARIA
     Route: 065
  3. RIZABEN [Concomitant]
     Indication: ERYTHEMA
     Route: 065
  4. HIRUDOID [Concomitant]
     Route: 065
  5. CINAL [Concomitant]
     Route: 065
  6. URSO 250 [Concomitant]
     Route: 048
  7. NEO-MINOPHAGEN C [Concomitant]
     Route: 065

REACTIONS (1)
  - LIVER DISORDER [None]
